FAERS Safety Report 8994746 (Version 1)
Quarter: 2012Q4

REPORT INFORMATION
  Report Type: Spontaneous
  Country: US (occurrence: None)
  Receive Date: 20121228
  Receipt Date: 20121228
  Transmission Date: 20130627
  Serious: Yes (Hospitalization)
  Sender: FDA-Public Use
  Company Number: None

PATIENT
  Age: 67 Year
  Sex: Male
  Weight: 96 kg

DRUGS (2)
  1. ABRAXANE [Suspect]
     Indication: LYMPHOMA
     Dosage: 220 weekly X 3 q 4 weeks IV
     Dates: start: 20120917
  2. ABRAXANE [Suspect]
     Indication: LYMPHOMA
     Dates: start: 20120924

REACTIONS (3)
  - Cellulitis [None]
  - Febrile neutropenia [None]
  - Staphylococcus test positive [None]
